FAERS Safety Report 12882390 (Version 3)
Quarter: 2017Q1

REPORT INFORMATION
  Report Type: Spontaneous
  Country: US (occurrence: US)
  Receive Date: 20161025
  Receipt Date: 20170124
  Transmission Date: 20170428
  Serious: Yes (Hospitalization)
  Sender: FDA-Public Use
  Company Number: US-BAYER-2016-204858

PATIENT
  Age: 24 Year
  Sex: Female

DRUGS (3)
  1. LUPRON [Concomitant]
     Active Substance: LEUPROLIDE ACETATE
     Indication: ENDOMETRIOSIS
     Dosage: UNK
     Dates: start: 201609
  2. MIRENA [Suspect]
     Active Substance: LEVONORGESTREL
     Indication: CONTRACEPTION
     Dosage: 20 MCG/24HR, CONT
     Route: 015
     Dates: start: 20130513, end: 20141009
  3. FLEXERIL [Concomitant]
     Active Substance: CYCLOBENZAPRINE HYDROCHLORIDE

REACTIONS (12)
  - Premature menopause [None]
  - Embedded device [Unknown]
  - Medical device pain [None]
  - Activities of daily living impaired [None]
  - Anxiety [None]
  - Infertility female [None]
  - Scar [None]
  - Oophorectomy [None]
  - Dysmenorrhoea [None]
  - Dyspareunia [None]
  - Depression [None]
  - Pain [None]

NARRATIVE: CASE EVENT DATE: 2014
